FAERS Safety Report 16392686 (Version 1)
Quarter: 2019Q2

REPORT INFORMATION
  Report Type: Report from Study
  Country: DE (occurrence: DE)
  Receive Date: 20190605
  Receipt Date: 20190605
  Transmission Date: 20190711
  Serious: Yes (Other)
  Sender: FDA-Public Use
  Company Number: DE-ROCHE-2330590

PATIENT
  Age: 39 Year
  Sex: Female
  Weight: 75 kg

DRUGS (6)
  1. RITUXIMAB. [Concomitant]
     Active Substance: RITUXIMAB
     Route: 065
  2. AERIUS (DESLORATADINE) [Concomitant]
     Active Substance: DESLORATADINE
     Indication: PROPHYLAXIS
     Dosage: INDICATION: SIDE EFFECT PROPHYLAXIS IN THE CONTEXT OF OCREVUS ADMINISTRATION
     Route: 048
     Dates: start: 20180603, end: 20180605
  3. DEKRISTOL [Concomitant]
     Active Substance: CHOLECALCIFEROL
     Indication: VITAMIN D DEFICIENCY
     Route: 048
     Dates: start: 20140409
  4. OCRELIZUMAB. [Suspect]
     Active Substance: OCRELIZUMAB
     Indication: MULTIPLE SCLEROSIS
     Dosage: MOST RECENT DOSE WAS RECEIVED ON 18/JUN/2018
     Route: 042
     Dates: start: 20180604
  5. RANITIDINE. [Concomitant]
     Active Substance: RANITIDINE
     Indication: PROPHYLAXIS
     Dosage: INDICATION: SIDE EFFECT PROPHYLAXIS IN THE CONTEXT OF OCREVUS ADMINISTRATION
     Route: 048
     Dates: start: 20180603, end: 20180605
  6. PREDNISOLUT [PREDNISOLONE HEMISUCCINATE] [Concomitant]
     Indication: PROPHYLAXIS
     Dosage: INDICATION: SIDE EFFECT PROPHYLAXIS IN THE CONTEXT OF OCREVUS ADMINISTRATION
     Route: 042
     Dates: start: 20180604, end: 20180604

REACTIONS (1)
  - Pneumonia [Recovered/Resolved]

NARRATIVE: CASE EVENT DATE: 20180828
